FAERS Safety Report 4804369-5 (Version None)
Quarter: 2005Q4

REPORT INFORMATION
  Report Type: 
  Country: None (occurrence: None)
  Receive Date: 20051017
  Receipt Date: 20051003
  Transmission Date: 20060501
  Serious: Yes (Hospitalization)
  Sender: FDA-Public Use
  Company Number: 2005137663

PATIENT
  Age: 82 Year
  Sex: Male
  Weight: 72.5755 kg

DRUGS (2)
  1. DETROL TABLET (TOLTERIDONE L-TARTRATE) [Suspect]
     Indication: URINARY INCONTINENCE
     Dates: start: 20040101
  2. ANTIHYPERTENSIVES (ANTIHYPERTENSIVES) [Concomitant]

REACTIONS (6)
  - ANGER [None]
  - ANXIETY [None]
  - CONDITION AGGRAVATED [None]
  - NOCTURIA [None]
  - OEDEMA PERIPHERAL [None]
  - THROMBOSIS [None]
